FAERS Safety Report 21018962 (Version 1)
Quarter: 2022Q2

REPORT INFORMATION
  Report Type: Spontaneous
  Country: CN (occurrence: CN)
  Receive Date: 20220628
  Receipt Date: 20220628
  Transmission Date: 20220720
  Serious: Yes (Other)
  Sender: FDA-Public Use
  Company Number: None

PATIENT
  Age: 46 Year
  Sex: Male
  Weight: 72.9 kg

DRUGS (12)
  1. CYCLOPHOSPHAMIDE [Suspect]
     Active Substance: CYCLOPHOSPHAMIDE
     Indication: Acute myeloid leukaemia
     Dosage: 3000 MG, QD ONCE DAILY, CYCLOPHOSPHAMIDE DILUTED WITH 0.9% SODIUM CHLORIDE, INTRA-PUMP INJECTION
     Route: 050
     Dates: start: 20220526, end: 20220526
  2. CYCLOPHOSPHAMIDE [Suspect]
     Active Substance: CYCLOPHOSPHAMIDE
     Dosage: QD (DOSE RE-INTRODUCED), CYCLOPHOSPHAMIDE DILUTED WITH 0.9% SODIUM CHLORIDE, INTRA-PUMP INJECTION
     Route: 050
  3. SODIUM CHLORIDE [Suspect]
     Active Substance: SODIUM CHLORIDE
     Indication: Medication dilution
     Dosage: 250 ML, QD ONCE DAILY, CYCLOPHOSPHAMIDE INJECTION 3000 MG, PUMP DILUTED WITH 0.9% SODIUM CHLORIDE 25
     Route: 050
     Dates: start: 20220526, end: 20220526
  4. SODIUM CHLORIDE [Suspect]
     Active Substance: SODIUM CHLORIDE
     Dosage: 250 ML, QD (CYTARABINE HYDROCHLORIDE 2700 MG DILUTED WITH 0.9% SODIUM CHLORIDE 250ML)
     Route: 041
     Dates: start: 20220524, end: 20220528
  5. SODIUM CHLORIDE [Suspect]
     Active Substance: SODIUM CHLORIDE
     Dosage: 100 ML, QD (FLUDARABINE PHOSPHATE 50 MG DILUTED WITH 0.9% SODIUM CHLORIDE 100ML)
     Route: 041
     Dates: start: 20220524, end: 20220528
  6. SODIUM CHLORIDE [Suspect]
     Active Substance: SODIUM CHLORIDE
     Dosage: DOSE RE-INTRODUCED, CYCLOPHOSPHAMIDE WITH SODIUM CHLORIDE) INTRA-PUMP INJECTION
     Route: 050
  7. SODIUM CHLORIDE [Suspect]
     Active Substance: SODIUM CHLORIDE
     Dosage: DOSE RE-INTRODUCED CYTARABINE HYDROCHLORIDE DILUTED WITH 0.9% SODIUM CHLORIDE
     Route: 041
  8. SODIUM CHLORIDE [Suspect]
     Active Substance: SODIUM CHLORIDE
     Dosage: DOSE RE-INTRODUCED FLUDARABINE PHOSPHATE DILUTED WITH 0.9% SODIUM CHLORIDE
     Route: 041
  9. CYTARABINE HYDROCHLORIDE [Suspect]
     Active Substance: CYTARABINE HYDROCHLORIDE
     Indication: Acute myeloid leukaemia
     Dosage: 2700 MG, QD ONCE DAILY, CYTARABINE HYDROCHLORIDE DILUTED WITH 0.9% SODIUM CHLORIDE
     Route: 041
     Dates: start: 20220524, end: 20220528
  10. CYTARABINE HYDROCHLORIDE [Suspect]
     Active Substance: CYTARABINE HYDROCHLORIDE
     Dosage: QD (DOSE RE-INTRODUCED), CYTARABINE HYDROCHLORIDE DILUTED WITH 0.9% SODIUM CHLORIDE
     Route: 041
  11. FLUDARABINE PHOSPHATE [Suspect]
     Active Substance: FLUDARABINE PHOSPHATE
     Indication: Acute myeloid leukaemia
     Dosage: 50 MG, QD ONCE DAILY, FLUDARABINE PHOSPHATE DILUTED WITH 0.9% SODIUM CHLORIDE
     Route: 041
     Dates: start: 20220524, end: 20220528
  12. FLUDARABINE PHOSPHATE [Suspect]
     Active Substance: FLUDARABINE PHOSPHATE
     Dosage: QD (DOSE RE-INTRODUCED), FLUDARABINE DILUTED WITH 0.9% SODIUM CHLORIDE
     Route: 041

REACTIONS (1)
  - Myelosuppression [Recovering/Resolving]

NARRATIVE: CASE EVENT DATE: 20220603
